FAERS Safety Report 22339268 (Version 1)
Quarter: 2023Q2

REPORT INFORMATION
  Report Type: Report from Study
  Country: US (occurrence: US)
  Receive Date: 20230518
  Receipt Date: 20230518
  Transmission Date: 20230722
  Serious: Yes (Hospitalization, Other)
  Sender: FDA-Public Use
  Company Number: US-PFIZER INC-US-GBT-020601

PATIENT
  Age: 15 Year
  Sex: Male

DRUGS (2)
  1. OXBRYTA [Suspect]
     Active Substance: VOXELOTOR
     Dosage: UNK
  2. ADAKVEO [CRIZANLIZUMAB] [Concomitant]
     Dosage: UNK

REACTIONS (6)
  - Acute chest syndrome [Unknown]
  - Sickle cell anaemia with crisis [Not Recovered/Not Resolved]
  - Adenovirus infection [Unknown]
  - Vomiting [Unknown]
  - Pneumonia [Unknown]
  - Pain [Unknown]

NARRATIVE: CASE EVENT DATE: 20220501
